FAERS Safety Report 5495334-6 (Version None)
Quarter: 2007Q4

REPORT INFORMATION
  Report Type: 
  Country: None (occurrence: None)
  Receive Date: 20071024
  Receipt Date: 20071012
  Transmission Date: 20080405
  Serious: Yes (Hospitalization)
  Sender: FDA-Public Use
  Company Number: US-PFIZER INC-2007087327

PATIENT
  Sex: Male
  Weight: 49 kg

DRUGS (3)
  1. CHANTIX [Suspect]
     Indication: SMOKING CESSATION THERAPY
     Route: 048
  2. NORVASC [Concomitant]
  3. DIOVAN HCT [Concomitant]

REACTIONS (1)
  - SURGERY [None]
